FAERS Safety Report 5196497-2 (Version None)
Quarter: 2006Q4

REPORT INFORMATION
  Report Type: 
  Country: None (occurrence: None)
  Receive Date: 20061227
  Receipt Date: 20061211
  Transmission Date: 20070319
  Serious: Yes (Life-Threatening, Hospitalization)
  Sender: FDA-Public Use
  Company Number: DSA_29033_2006

PATIENT
  Age: 30 Year
  Sex: Male

DRUGS (4)
  1. TAVOR                                           /00273201/ [Suspect]
     Dosage: 1 MG ONCE PO
     Route: 048
     Dates: start: 20061119, end: 20061119
  2. DOXEPIN HCL [Suspect]
     Dosage: 500 MG ONCE PO
     Route: 048
     Dates: start: 20061119, end: 20061119
  3. SEROQUEL [Suspect]
     Dosage: 1000 MG ONCE PO
     Route: 048
     Dates: start: 20061119, end: 20061119
  4. ALCOHOL [Suspect]
     Dosage: DF ONCE PO
     Route: 048
     Dates: start: 20061119, end: 20061119

REACTIONS (7)
  - ALCOHOL USE [None]
  - ELECTROCARDIOGRAM CHANGE [None]
  - FATIGUE [None]
  - MULTIPLE DRUG OVERDOSE INTENTIONAL [None]
  - SOMNOLENCE [None]
  - SUICIDE ATTEMPT [None]
  - TACHYCARDIA [None]
